FAERS Safety Report 7639332-2 (Version None)
Quarter: 2011Q3

REPORT INFORMATION
  Report Type: 
  Country: None (occurrence: None)
  Receive Date: 20110721
  Receipt Date: 20110713
  Transmission Date: 20111222
  Serious: Yes (Other)
  Sender: FDA-Public Use
  Company Number: 2011S1000909

PATIENT
  Age: 57 Year
  Sex: Male
  Weight: 78 kg

DRUGS (10)
  1. MEXITIL [Concomitant]
  2. LIVALO [Suspect]
     Indication: DYSLIPIDAEMIA
     Dosage: 1 MG;1X;PO ; 4 MG;1X;PO
     Route: 048
     Dates: start: 20110517, end: 20110620
  3. LIVALO [Suspect]
     Indication: DYSLIPIDAEMIA
     Dosage: 1 MG;1X;PO ; 4 MG;1X;PO
     Route: 048
     Dates: start: 20110201, end: 20110516
  4. ALOSITOL [Concomitant]
  5. SIGMART [Concomitant]
  6. LOSARTAN POTASSIUM [Concomitant]
  7. PLAVIX [Concomitant]
  8. ZESTRIL [Concomitant]
  9. ASPIRIN [Concomitant]
  10. ISOSORBIDE DINITRATE [Concomitant]

REACTIONS (3)
  - TENDONITIS [None]
  - HEPATIC FUNCTION ABNORMAL [None]
  - ALCOHOL USE [None]
